FAERS Safety Report 14351358 (Version 2)
Quarter: 2018Q1

REPORT INFORMATION
  Report Type: Spontaneous
  Country: US (occurrence: US)
  Receive Date: 20180104
  Receipt Date: 20180110
  Transmission Date: 20180509
  Serious: No
  Sender: FDA-Public Use
  Company Number: US-PFIZER INC-2017553517

PATIENT
  Age: 76 Year
  Sex: Female

DRUGS (10)
  1. MORPHINE SULFATE. [Suspect]
     Active Substance: MORPHINE SULFATE
     Dosage: UNK
  2. CODEINE [Suspect]
     Active Substance: CODEINE
     Dosage: UNK
  3. TEQUIN [Suspect]
     Active Substance: GATIFLOXACIN
     Dosage: UNK
  4. CLARITHROMYCIN. [Suspect]
     Active Substance: CLARITHROMYCIN
     Dosage: UNK
  5. NIACIN. [Suspect]
     Active Substance: NIACIN
     Dosage: UNK
  6. ATENOLOL. [Suspect]
     Active Substance: ATENOLOL
     Dosage: UNK
  7. LESCOL [Suspect]
     Active Substance: FLUVASTATIN SODIUM
     Dosage: UNK
  8. LEVAQUIN [Suspect]
     Active Substance: LEVOFLOXACIN
     Dosage: UNK
  9. DILTIAZEM HCL [Suspect]
     Active Substance: DILTIAZEM HYDROCHLORIDE
     Dosage: UNK
  10. AUGMENTIN [Suspect]
     Active Substance: AMOXICILLIN\CLAVULANATE POTASSIUM
     Dosage: UNK

REACTIONS (1)
  - Drug hypersensitivity [Unknown]
